FAERS Safety Report 18346754 (Version 1)
Quarter: 2020Q4

REPORT INFORMATION
  Report Type: Spontaneous
  Country: US (occurrence: US)
  Receive Date: 20201005
  Receipt Date: 20201005
  Transmission Date: 20210114
  Serious: Yes (Death, Other)
  Sender: FDA-Public Use
  Company Number: US-GILEAD-2020-0497381

PATIENT
  Sex: Male

DRUGS (11)
  1. NADOLOL. [Concomitant]
     Active Substance: NADOLOL
  2. LEVEMIR [Concomitant]
     Active Substance: INSULIN DETEMIR
  3. FUROSEMIDE. [Concomitant]
     Active Substance: FUROSEMIDE
  4. AMLODIPINE [Concomitant]
     Active Substance: AMLODIPINE BESYLATE
  5. PHOSPHASAL [Concomitant]
     Active Substance: HYOSCYAMINE SULFATE\METHENAMINE\METHYLENE BLUE\PHENYL SALICYLATE\SODIUM PHOSPHATE, MONOBASIC, MONOHYDRATE
  6. INSULIN [Concomitant]
     Active Substance: INSULIN NOS
  7. GABAPENTIN. [Concomitant]
     Active Substance: GABAPENTIN
  8. TRULICITY [Concomitant]
     Active Substance: DULAGLUTIDE
  9. LACTULOSE. [Concomitant]
     Active Substance: LACTULOSE
  10. VEMLIDY [Suspect]
     Active Substance: TENOFOVIR ALAFENAMIDE FUMARATE
     Indication: HEPATITIS B
     Dosage: 1 DOSAGE FORM, QD
     Route: 048
  11. TRAMADOL. [Concomitant]
     Active Substance: TRAMADOL

REACTIONS (1)
  - Death [Fatal]
